FAERS Safety Report 15361592 (Version 4)
Quarter: 2023Q2

REPORT INFORMATION
  Report Type: Spontaneous
  Country: IT (occurrence: IT)
  Receive Date: 20180907
  Receipt Date: 20230411
  Transmission Date: 20230722
  Serious: Yes (Other)
  Sender: FDA-Public Use
  Company Number: PHHY2018IT087399

PATIENT
  Age: 50 Year
  Sex: Female

DRUGS (9)
  1. OCTREOTIDE [Suspect]
     Active Substance: OCTREOTIDE
     Indication: Product used for unknown indication
     Dosage: UNK
     Route: 065
  2. OCTREOTIDE [Suspect]
     Active Substance: OCTREOTIDE
  3. OCTREOTIDE [Suspect]
     Active Substance: OCTREOTIDE
  4. FENTANYL CITRATE [Suspect]
     Active Substance: FENTANYL CITRATE
     Indication: Anaesthesia
     Dosage: BOLUS
     Route: 040
  5. MIDAZOLAM [Suspect]
     Active Substance: MIDAZOLAM
     Indication: Anaesthesia
     Dosage: UNK
     Route: 065
  6. PROPOFOL [Suspect]
     Active Substance: PROPOFOL
     Indication: Anaesthesia
     Dosage: UNK
     Route: 041
  7. SUFENTANIL CITRATE [Suspect]
     Active Substance: SUFENTANIL CITRATE
     Indication: Anaesthesia
     Dosage: UNK
     Route: 065
  8. ROCURONIUM BROMIDE [Suspect]
     Active Substance: ROCURONIUM BROMIDE
     Indication: Anaesthesia
     Dosage: UNK
     Route: 065
  9. SEVOFLURANE [Suspect]
     Active Substance: SEVOFLURANE
     Indication: Anaesthesia
     Dosage: UNK, RESPIRATORY (INHALATION)

REACTIONS (9)
  - Anuria [Unknown]
  - Carcinoid crisis [Unknown]
  - Vasoplegia syndrome [Unknown]
  - Haemodynamic instability [Unknown]
  - Hyperdynamic left ventricle [Unknown]
  - Blood lactic acid increased [Unknown]
  - Right ventricular dysfunction [Unknown]
  - Hypotension [Unknown]
  - Contraindicated product administered [Unknown]
